FAERS Safety Report 9296030 (Version 1)
Quarter: 2013Q2

REPORT INFORMATION
  Report Type: Spontaneous
  Country: GB (occurrence: None)
  Receive Date: 20130514
  Receipt Date: 20130514
  Transmission Date: 20140414
  Serious: Yes (Other)
  Sender: FDA-Public Use
  Company Number: 2013P1005391

PATIENT
  Age: 37 Year
  Sex: Female

DRUGS (1)
  1. GLYBURIDE + METFORMIN [Suspect]
     Indication: TYPE 2 DIABETES MELLITUS

REACTIONS (7)
  - Convulsion [None]
  - Cerebral atrophy [None]
  - Cerebellar atrophy [None]
  - Lactic acidosis [None]
  - Deafness [None]
  - Encephalopathy [None]
  - Gestational diabetes [None]
